FAERS Safety Report 12495096 (Version 1)
Quarter: 2016Q2

REPORT INFORMATION
  Report Type: Spontaneous
  Country: ES (occurrence: ES)
  Receive Date: 20160624
  Receipt Date: 20160624
  Transmission Date: 20160815
  Serious: Yes (Death, Hospitalization, Other)
  Sender: FDA-Public Use
  Company Number: ES-ACCORD-041666

PATIENT
  Age: 62 Year
  Sex: Female

DRUGS (3)
  1. ETOPOSIDE. [Suspect]
     Active Substance: ETOPOSIDE
     Indication: OVARIAN DYSGERMINOMA STAGE III
     Dosage: EVERY 21 DAYS CYCLICAL
  2. CISPLATIN. [Suspect]
     Active Substance: CISPLATIN
     Indication: OVARIAN DYSGERMINOMA STAGE III
     Dosage: EVERY 21 DAYS CYCLICAL
  3. BLEOMYCIN [Suspect]
     Active Substance: BLEOMYCIN SULFATE
     Indication: OVARIAN DYSGERMINOMA STAGE III
     Dosage: EVERY 21 DAYS CYCLICAL

REACTIONS (5)
  - Acute respiratory distress syndrome [Unknown]
  - Febrile neutropenia [Unknown]
  - Off label use [Unknown]
  - Interstitial lung disease [Unknown]
  - Pulmonary fibrosis [Fatal]
